FAERS Safety Report 17030680 (Version 4)
Quarter: 2019Q4

REPORT INFORMATION
  Report Type: Spontaneous
  Country: ES (occurrence: ES)
  Receive Date: 20191114
  Receipt Date: 20191213
  Transmission Date: 20200122
  Serious: Yes (Hospitalization, Other)
  Sender: FDA-Public Use
  Company Number: ES-PFIZER INC-2019488234

PATIENT
  Age: 59 Year
  Sex: Female

DRUGS (1)
  1. DUAVIVE [Suspect]
     Active Substance: BAZEDOXIFENE ACETATE\ESTROGENS, CONJUGATED
     Indication: MENOPAUSAL SYMPTOMS
     Dosage: UNK
     Dates: end: 2019

REACTIONS (7)
  - Pyrexia [Unknown]
  - Pleural effusion [Unknown]
  - Dyspnoea [Unknown]
  - Abdominal distension [Unknown]
  - Uterine polyp [Unknown]
  - Adenocarcinoma [Unknown]
  - Malaise [Unknown]

NARRATIVE: CASE EVENT DATE: 2019
